FAERS Safety Report 5053594-X (Version None)
Quarter: 2006Q3

REPORT INFORMATION
  Report Type: 
  Country: None (occurrence: None)
  Receive Date: 20060712
  Receipt Date: 20060623
  Transmission Date: 20061208
  Serious: Yes (Death, Hospitalization, Other)
  Sender: FDA-Public Use
  Company Number: JP200606000016

PATIENT
  Age: 58 Year
  Sex: Female
  Weight: 59 kg

DRUGS (5)
  1. GEMZAR [Suspect]
     Indication: PANCREATIC CARCINOMA STAGE IV
     Dosage: 1000 MG, OTHER, INTRAVENOUS
     Route: 042
     Dates: start: 20060403, end: 20060403
  2. CISPLATIN [Concomitant]
  3. PREDONINE-1 (PREDNISOLONE ACETATE) [Concomitant]
  4. KYTRIL - FOR INFUSION (GRANISETRON HYDROCHLORIDE) [Concomitant]
  5. OXYCONTIN [Concomitant]

REACTIONS (12)
  - CEREBELLAR INFARCTION [None]
  - CEREBRAL INFARCTION [None]
  - CEREBRAL ISCHAEMIA [None]
  - DEHYDRATION [None]
  - HAEMATEMESIS [None]
  - HEART RATE INCREASED [None]
  - HYPOAESTHESIA [None]
  - MALIGNANT NEOPLASM PROGRESSION [None]
  - MELAENA [None]
  - METASTASES TO LIVER [None]
  - PANCREATIC CARCINOMA [None]
  - PYREXIA [None]
